FAERS Safety Report 13702847 (Version 1)
Quarter: 2017Q2

REPORT INFORMATION
  Report Type: Report from Study
  Country: US (occurrence: US)
  Receive Date: 20170629
  Receipt Date: 20170629
  Transmission Date: 20170830
  Serious: Yes (Death, Other)
  Sender: FDA-Public Use
  Company Number: US-REGENERON PHARMACEUTICALS, INC.-2017-15671

PATIENT

DRUGS (5)
  1. EYLEA [Suspect]
     Active Substance: AFLIBERCEPT
     Dosage: UNK
     Dates: start: 20160201, end: 20160201
  2. EYLEA [Suspect]
     Active Substance: AFLIBERCEPT
     Dosage: UNK
     Dates: start: 20160307, end: 20160307
  3. EYLEA [Suspect]
     Active Substance: AFLIBERCEPT
     Indication: PRODUCT USED FOR UNKNOWN INDICATION
     Dosage: UNK
     Dates: start: 20151001, end: 20151001
  4. EYLEA [Suspect]
     Active Substance: AFLIBERCEPT
     Dosage: UNK
     Dates: start: 20160104, end: 20160104
  5. EYLEA [Suspect]
     Active Substance: AFLIBERCEPT
     Dosage: UNK
     Dates: start: 20151105, end: 20151105

REACTIONS (1)
  - Death [Fatal]
